FAERS Safety Report 18398901 (Version 1)
Quarter: 2020Q4

REPORT INFORMATION
  Report Type: Spontaneous
  Country: BR (occurrence: BR)
  Receive Date: 20201019
  Receipt Date: 20201019
  Transmission Date: 20210114
  Serious: Yes (Death)
  Sender: FDA-Public Use
  Company Number: BR-BAYER-2020-220692

PATIENT
  Age: 56 Year
  Sex: Male

DRUGS (3)
  1. STIVARGA [Suspect]
     Active Substance: REGORAFENIB
     Indication: COLORECTAL CANCER METASTATIC
     Dosage: 160 MG
     Route: 048
     Dates: start: 20200319, end: 20200430
  2. STIVARGA [Suspect]
     Active Substance: REGORAFENIB
     Indication: COLORECTAL CANCER METASTATIC
     Dosage: 120 MG
     Route: 048
     Dates: start: 20200215, end: 20200319
  3. STIVARGA [Suspect]
     Active Substance: REGORAFENIB
     Indication: COLORECTAL CANCER METASTATIC
     Dosage: 80 MG
     Route: 048
     Dates: start: 20200430, end: 20200519

REACTIONS (9)
  - Decreased appetite [None]
  - Blood bilirubin increased [Recovering/Resolving]
  - Asthenia [None]
  - Anaemia [None]
  - Colorectal cancer metastatic [Fatal]
  - Diarrhoea [None]
  - Dyspnoea [None]
  - Transaminases increased [Recovering/Resolving]
  - Off label use [Recovered/Resolved]

NARRATIVE: CASE EVENT DATE: 2020
